FAERS Safety Report 18593047 (Version 2)
Quarter: 2020Q4

REPORT INFORMATION
  Report Type: Report from Study
  Country: US (occurrence: US)
  Receive Date: 20201208
  Receipt Date: 20201222
  Transmission Date: 20210114
  Serious: Yes (Death, Hospitalization)
  Sender: FDA-Public Use
  Company Number: US-OTSUKA-2020_030477

PATIENT
  Age: 90 Year
  Sex: Female

DRUGS (1)
  1. ASTX727 [Suspect]
     Active Substance: CEDAZURIDINE\DECITABINE
     Indication: MYELOPROLIFERATIVE NEOPLASM
     Dosage: 135 MG (35 MG DECITABINE AND 100 MG CEDAZURIDINE) QD
     Route: 065
     Dates: start: 20201116

REACTIONS (2)
  - Full blood count decreased [Unknown]
  - Death [Fatal]

NARRATIVE: CASE EVENT DATE: 20201203
